FAERS Safety Report 21278348 (Version 4)
Quarter: 2022Q4

REPORT INFORMATION
  Report Type: Report from Study
  Country: DZ (occurrence: None)
  Receive Date: 20220831
  Receipt Date: 20221016
  Transmission Date: 20230112
  Serious: Yes (Other)
  Sender: FDA-Public Use
  Company Number: DZ-Merck Healthcare KGaA-9346719

PATIENT
  Age: 37 Year
  Sex: Male

DRUGS (3)
  1. REBIF [Suspect]
     Active Substance: INTERFERON BETA-1A
     Indication: Multiple sclerosis
     Route: 058
     Dates: start: 20160901, end: 20220224
  2. DOLYC [Concomitant]
     Indication: Product used for unknown indication
  3. KEITYL [Concomitant]
     Indication: Product used for unknown indication

REACTIONS (1)
  - Bone cancer [Not Recovered/Not Resolved]
